FAERS Safety Report 7490530-0 (Version None)
Quarter: 2011Q2

REPORT INFORMATION
  Report Type: 
  Country: None (occurrence: None)
  Receive Date: 20110512
  Receipt Date: 20110427
  Transmission Date: 20111010
  Serious: Yes (Other)
  Sender: FDA-Public Use
  Company Number: AUR-APU-2011-01490

PATIENT
  Age: 39 Year
  Sex: Female

DRUGS (1)
  1. MIRTAZAPINE [Suspect]
     Indication: DEPRESSION
     Dosage: 30MG-DAILY-ORAL
     Route: 048
     Dates: start: 20110420

REACTIONS (5)
  - MALAISE [None]
  - MUSCLE SPASMS [None]
  - DIARRHOEA [None]
  - RETCHING [None]
  - NAUSEA [None]
